FAERS Safety Report 12191147 (Version 1)
Quarter: 2016Q1

REPORT INFORMATION
  Report Type: Report from Study
  Country: US (occurrence: US)
  Receive Date: 20160318
  Receipt Date: 20160318
  Transmission Date: 20160526
  Serious: Yes (Hospitalization)
  Sender: FDA-Public Use
  Company Number: US-PFIZER INC-2016146359

PATIENT
  Age: 63 Year
  Sex: Male
  Weight: 106 kg

DRUGS (5)
  1. BLINDED THERAPY [Suspect]
     Active Substance: INVESTIGATIONAL PRODUCT
     Indication: CARDIAC FAILURE CHRONIC
     Dosage: CEP-41750 VS. PLACEBO, I.C.
     Route: 016
     Dates: start: 20141210, end: 20141210
  2. CARVEDILOL. [Suspect]
     Active Substance: CARVEDILOL
  3. SPIRONOLACTONE. [Suspect]
     Active Substance: SPIRONOLACTONE
  4. LISINOPRIL. [Suspect]
     Active Substance: LISINOPRIL
  5. FUROSEMIDE. [Suspect]
     Active Substance: FUROSEMIDE

REACTIONS (2)
  - Staphylococcal infection [Recovered/Resolved]
  - Mental status changes [Recovered/Resolved]

NARRATIVE: CASE EVENT DATE: 20151123
